FAERS Safety Report 17681301 (Version 2)
Quarter: 2020Q2

REPORT INFORMATION
  Report Type: Spontaneous
  Country: US (occurrence: US)
  Receive Date: 20200417
  Receipt Date: 20200518
  Transmission Date: 20200714
  Serious: No
  Sender: FDA-Public Use
  Company Number: US-CELGENEUS-USA-20200402456

PATIENT
  Sex: Female

DRUGS (4)
  1. OTEZLA [Suspect]
     Active Substance: APREMILAST
     Indication: ARTHRITIS
  2. HUMIRA [Concomitant]
     Active Substance: ADALIMUMAB
     Indication: PSORIASIS
  3. OTEZLA [Suspect]
     Active Substance: APREMILAST
     Indication: PSORIATIC ARTHROPATHY
     Dosage: 60 MILLIGRAM
     Route: 048
     Dates: start: 20200206
  4. HUMIRA [Concomitant]
     Active Substance: ADALIMUMAB
     Indication: PSORIATIC ARTHROPATHY
     Dosage: 0.4 MILLIGRAM/MILLILITERS
     Route: 058
     Dates: start: 20190327

REACTIONS (6)
  - Nasal congestion [Unknown]
  - Arthralgia [Unknown]
  - Nasopharyngitis [Unknown]
  - Impaired self-care [Unknown]
  - Joint stiffness [Unknown]
  - Fatigue [Unknown]

NARRATIVE: CASE EVENT DATE: 2020
